FAERS Safety Report 26169722 (Version 1)
Quarter: 2025Q4

REPORT INFORMATION
  Report Type: Spontaneous
  Country: US (occurrence: None)
  Receive Date: 20251217
  Receipt Date: 20251217
  Transmission Date: 20260117
  Serious: Yes (Hospitalization)
  Sender: UCB
  Company Number: UG-069-000024579

PATIENT
  Age: 77 Year

DRUGS (1)
  1. KEPPRA [Suspect]
     Active Substance: LEVETIRACETAM
     Indication: Seizure
     Dosage: 1500 MILLIGRAM, 2X/DAY (BID) (1000 MG, 1.5 TABS TWICE DAILY)
     Route: 061

REACTIONS (3)
  - Surgery [Not Recovered/Not Resolved]
  - Muscular weakness [Not Recovered/Not Resolved]
  - Wrong technique in product usage process [Unknown]
